FAERS Safety Report 13068203 (Version 1)
Quarter: 2016Q4

REPORT INFORMATION
  Report Type: Spontaneous
  Country: US (occurrence: US)
  Receive Date: 20161224
  Receipt Date: 20161224
  Transmission Date: 20170207
  Serious: Yes (Hospitalization)
  Sender: FDA-Public Use
  Company Number: None

PATIENT
  Age: 11 Year
  Sex: Female
  Weight: 42.8 kg

DRUGS (4)
  1. METHOTREXATE. [Suspect]
     Active Substance: METHOTREXATE
     Dates: end: 20161210
  2. ONCASPAR [Suspect]
     Active Substance: PEGASPARGASE
     Dosage: 3300 UNIT
     Dates: end: 20161205
  3. MITOXANTRONE HYDROCHLORIDE. [Suspect]
     Active Substance: MITOXANTRONE HYDROCHLORIDE
     Dates: end: 20161204
  4. VINCRISTINE SULFATE. [Suspect]
     Active Substance: VINCRISTINE SULFATE
     Dates: end: 20161210

REACTIONS (3)
  - Seizure [None]
  - Encephalopathy [None]
  - Delirium [None]

NARRATIVE: CASE EVENT DATE: 20161216
